FAERS Safety Report 7996101-1 (Version None)
Quarter: 2011Q4

REPORT INFORMATION
  Report Type: 
  Country: None (occurrence: None)
  Receive Date: 20111220
  Receipt Date: 20111213
  Transmission Date: 20120403
  Serious: Yes (Other)
  Sender: FDA-Public Use
  Company Number: PHEH2011US011317

PATIENT
  Sex: Female
  Weight: 58.2 kg

DRUGS (7)
  1. MULTI-VITAMIN [Concomitant]
     Dosage: UNK UKN, UNK
     Route: 048
  2. RECLAST [Suspect]
     Indication: SENILE OSTEOPOROSIS
     Dosage: 5 MG,PER 100ML YEARLY
     Route: 042
     Dates: start: 20091014
  3. RECLAST [Suspect]
     Dosage: 5 MG,PER 100ML YEARLY
     Route: 042
     Dates: start: 20101021
  4. PANTOPRAZOLE [Concomitant]
     Dosage: 40 MG, DAILY
     Route: 048
  5. WARFARIN SODIUM [Concomitant]
     Dosage: 5 MG, DAILY
     Route: 048
  6. TRAMADOL HCL [Concomitant]
     Dosage: 50 MG, BID
     Route: 048
  7. RECLAST [Suspect]
     Dosage: 5 MG,PER 100ML YEARLY
     Route: 042
     Dates: start: 20111208

REACTIONS (1)
  - HIP FRACTURE [None]
